FAERS Safety Report 8275802-4 (Version None)
Quarter: 2012Q2

REPORT INFORMATION
  Report Type: 
  Country: None (occurrence: None)
  Receive Date: 20120410
  Receipt Date: 20120410
  Transmission Date: 20120825
  Serious: Yes (Life-Threatening, Hospitalization)
  Sender: FDA-Public Use
  Company Number: None

PATIENT
  Age: 51 Year
  Sex: Male
  Weight: 111.8 kg

DRUGS (2)
  1. DIVALPROEX SODIUM [Suspect]
     Indication: SCHIZOAFFECTIVE DISORDER
     Dosage: 2500 MG AT BEDTIME PO
     Route: 048
     Dates: start: 20110901, end: 20110929
  2. OLANZAPINE [Suspect]
     Indication: SCHIZOAFFECTIVE DISORDER
     Dates: start: 20110906, end: 20110910

REACTIONS (14)
  - TREMOR [None]
  - TACHYCARDIA [None]
  - BREATH HOLDING [None]
  - CONDITION AGGRAVATED [None]
  - ANXIETY [None]
  - RESPIRATORY RATE INCREASED [None]
  - FEELING ABNORMAL [None]
  - RESTLESSNESS [None]
  - PYREXIA [None]
  - PROTEIN URINE PRESENT [None]
  - INFECTION [None]
  - HYPERTHERMIA [None]
  - BLOOD CREATININE INCREASED [None]
  - BLOOD LACTIC ACID INCREASED [None]
